FAERS Safety Report 6617765-0 (Version None)
Quarter: 2010Q1

REPORT INFORMATION
  Report Type: 
  Country: None (occurrence: None)
  Receive Date: 20100308
  Receipt Date: 20100226
  Transmission Date: 20100710
  Serious: Yes (Other)
  Sender: FDA-Public Use
  Company Number: PHHY2009BR04445

PATIENT
  Sex: Female
  Weight: 65 kg

DRUGS (3)
  1. EXELON [Suspect]
     Indication: DEMENTIA ALZHEIMER'S TYPE
     Dosage: 1.5 MG, BID
     Route: 048
     Dates: start: 20080101
  2. EXELON [Suspect]
     Dosage: 4.5 MG
     Route: 048
  3. SERTRALINE HCL [Concomitant]

REACTIONS (12)
  - CONFUSIONAL STATE [None]
  - DEMENTIA ALZHEIMER'S TYPE [None]
  - DISORIENTATION [None]
  - FEAR [None]
  - HALLUCINATION [None]
  - INSOMNIA [None]
  - MEMORY IMPAIRMENT [None]
  - MENTAL RETARDATION [None]
  - OEDEMA PERIPHERAL [None]
  - URINARY INCONTINENCE [None]
  - URINARY TRACT INFECTION [None]
  - VIRAL INFECTION [None]
